FAERS Safety Report 15165377 (Version 2)
Quarter: 2018Q3

REPORT INFORMATION
  Report Type: Spontaneous
  Country: JP (occurrence: JP)
  Receive Date: 20180719
  Receipt Date: 20180912
  Transmission Date: 20181010
  Serious: Yes (Hospitalization)
  Sender: FDA-Public Use
  Company Number: JP-TEVA-2018-JP-926305

PATIENT
  Age: 58 Year
  Sex: Female
  Weight: 44 kg

DRUGS (10)
  1. HEPARIN [Suspect]
     Active Substance: HEPARIN SODIUM
     Indication: THROMBOSIS PROPHYLAXIS
     Dosage: 4000 UNITS
     Route: 042
  2. FENTANYL. [Concomitant]
     Active Substance: FENTANYL
     Indication: INDUCTION OF ANAESTHESIA
     Route: 065
  3. SEVOFLURANE. [Concomitant]
     Active Substance: SEVOFLURANE
     Indication: MAINTENANCE OF ANAESTHESIA
     Route: 065
  4. PROPOFOL. [Concomitant]
     Active Substance: PROPOFOL
     Indication: INDUCTION OF ANAESTHESIA
     Route: 065
  5. ROCURONIUM [Concomitant]
     Active Substance: ROCURONIUM BROMIDE
     Indication: INDUCTION OF ANAESTHESIA
     Dosage: FOR ANAESTHETIC INDUCTION
     Route: 065
  6. CLOPIDOGREL [Suspect]
     Active Substance: CLOPIDOGREL BISULFATE
     Indication: THROMBOSIS PROPHYLAXIS
     Route: 065
  7. PRASUGREL. [Suspect]
     Active Substance: PRASUGREL
     Indication: THROMBOSIS PROPHYLAXIS
     Route: 065
  8. ROCURONIUM [Concomitant]
     Active Substance: ROCURONIUM BROMIDE
     Indication: MAINTENANCE OF ANAESTHESIA
     Dosage: FOR ANAESTHETIC MAINTENANCE
     Route: 065
  9. REMIFENTANIL [Concomitant]
     Active Substance: REMIFENTANIL
     Indication: MAINTENANCE OF ANAESTHESIA
     Dosage: 0.1 UG/KG/MINUTE
     Route: 065
  10. ASPIRIN. [Suspect]
     Active Substance: ASPIRIN
     Indication: THROMBOSIS PROPHYLAXIS
     Route: 065

REACTIONS (4)
  - Oesophageal disorder [Recovering/Resolving]
  - Oesophageal dilatation [Recovering/Resolving]
  - Abscess [Recovering/Resolving]
  - Haematoma [Recovering/Resolving]
